FAERS Safety Report 5403745-X (Version None)
Quarter: 2007Q3

REPORT INFORMATION
  Report Type: 
  Country: None (occurrence: None)
  Receive Date: 20070731
  Receipt Date: 20070731
  Transmission Date: 20080115
  Serious: No
  Sender: FDA-Public Use
  Company Number: None

PATIENT
  Age: 42 Year
  Sex: Female
  Weight: 49.8957 kg

DRUGS (1)
  1. WELLBUTRIN [Suspect]
     Indication: ANXIETY
     Dosage: 1-9-07 PO 1QD
     Dates: start: 20070101

REACTIONS (3)
  - BLOOD PRESSURE INCREASED [None]
  - HEADACHE [None]
  - NAUSEA [None]
